FAERS Safety Report 17637768 (Version 1)
Quarter: 2020Q2

REPORT INFORMATION
  Report Type: Spontaneous
  Country: US (occurrence: US)
  Receive Date: 20200407
  Receipt Date: 20200407
  Transmission Date: 20200713
  Serious: No
  Sender: FDA-Public Use
  Company Number: US-JNJFOC-20200331435

PATIENT
  Sex: Female

DRUGS (1)
  1. MENS ROGAINE EXTRA STRENGTH [Suspect]
     Active Substance: MINOXIDIL
     Indication: ALOPECIA
     Route: 061
     Dates: start: 201906, end: 201909

REACTIONS (7)
  - Application site erythema [Recovered/Resolved]
  - Application site pain [Not Recovered/Not Resolved]
  - Intentional product misuse [Unknown]
  - Application site rash [Recovered/Resolved]
  - Product use issue [Unknown]
  - Application site pruritus [Recovered/Resolved]
  - Alopecia [Not Recovered/Not Resolved]

NARRATIVE: CASE EVENT DATE: 2019
